FAERS Safety Report 6260785-9 (Version None)
Quarter: 2009Q3

REPORT INFORMATION
  Report Type: 
  Country: None (occurrence: None)
  Receive Date: 20090707
  Receipt Date: 20090623
  Transmission Date: 20100115
  Serious: Yes (Other)
  Sender: FDA-Public Use
  Company Number: 2009AP002537

PATIENT
  Age: 17 Year
  Sex: Male

DRUGS (1)
  1. RISPERIDONE [Suspect]
     Indication: PSYCHOTIC DISORDER
     Dosage: 8 MG; PO
     Route: 048
     Dates: start: 20090101, end: 20090301

REACTIONS (4)
  - CATATONIA [None]
  - DRUG WITHDRAWAL SYNDROME [None]
  - LABILE BLOOD PRESSURE [None]
  - NEUROLEPTIC MALIGNANT SYNDROME [None]
